FAERS Safety Report 6068761-6 (Version None)
Quarter: 2009Q1

REPORT INFORMATION
  Report Type: 
  Country: None (occurrence: None)
  Receive Date: 20090206
  Receipt Date: 20090124
  Transmission Date: 20090719
  Serious: Yes (Hospitalization, Other)
  Sender: FDA-Public Use
  Company Number: ES-GENENTECH-269285

PATIENT
  Age: 38 Year
  Sex: Female

DRUGS (2)
  1. LUCENTIS [Suspect]
     Indication: NEOVASCULARISATION
  2. LUCENTIS [Suspect]
     Indication: VISUAL ACUITY REDUCED

REACTIONS (2)
  - ATRIAL TACHYCARDIA [None]
  - VISUAL ACUITY REDUCED [None]
